FAERS Safety Report 4431488-8 (Version None)
Quarter: 2004Q3

REPORT INFORMATION
  Report Type: 
  Country: None (occurrence: None)
  Receive Date: 20040818
  Receipt Date: 20040730
  Transmission Date: 20050211
  Serious: Yes (Hospitalization)
  Sender: FDA-Public Use
  Company Number: MEDI-0002163

PATIENT
  Age: 54 Year
  Sex: Male
  Weight: 83.9154 kg

DRUGS (5)
  1. ETHYOL [Suspect]
     Indication: RADIOTHERAPY
     Dosage: SEE IMAGE
     Route: 058
     Dates: start: 20040718, end: 20040723
  2. ETHYOL [Suspect]
     Indication: RADIOTHERAPY
     Dosage: SEE IMAGE
     Route: 058
     Dates: start: 20040728, end: 20040728
  3. RADIATION THERAPY [Concomitant]
  4. LOTREL [Concomitant]
  5. ANTIDEPRESSANT [Concomitant]

REACTIONS (9)
  - CHILLS [None]
  - HEPATOMEGALY [None]
  - HYPOTENSION [None]
  - JAUNDICE [None]
  - NEUTROPENIA [None]
  - PYREXIA [None]
  - RESPIRATORY DISTRESS [None]
  - SPLENOMEGALY [None]
  - TREMOR [None]
